FAERS Safety Report 21033671 (Version 7)
Quarter: 2022Q4

REPORT INFORMATION
  Report Type: Report from Study
  Country: CA (occurrence: CA)
  Receive Date: 20220701
  Receipt Date: 20221212
  Transmission Date: 20230113
  Serious: Yes (Hospitalization, Other)
  Sender: FDA-Public Use
  Company Number: CA-OTSUKA-2021_020061

PATIENT
  Age: 79 Year
  Sex: Female

DRUGS (5)
  1. CEDAZURIDINE\DECITABINE [Suspect]
     Active Substance: CEDAZURIDINE\DECITABINE
     Indication: Myelodysplastic syndrome
     Dosage: (35 MG OF DECITABINE AND 100 MG OF CEDAZURIDINE)
     Route: 065
     Dates: start: 20210419
  2. CEDAZURIDINE\DECITABINE [Suspect]
     Active Substance: CEDAZURIDINE\DECITABINE
     Indication: Chronic myelomonocytic leukaemia
     Dosage: QD (3 TABLET IN 28 DAYS CYCLE)
     Route: 048
  3. CEDAZURIDINE\DECITABINE [Suspect]
     Active Substance: CEDAZURIDINE\DECITABINE
     Dosage: 3 PILLS FOR EVERY MONTH AND HALF
     Route: 048
  4. CEDAZURIDINE\DECITABINE [Suspect]
     Active Substance: CEDAZURIDINE\DECITABINE
     Dosage: 1 DF, QD (FROM DAY1 TO DAY 3) OF 42-DAY CYCLE
     Route: 065
  5. CEDAZURIDINE\DECITABINE [Suspect]
     Active Substance: CEDAZURIDINE\DECITABINE
     Dosage: UNK
     Route: 065
     Dates: start: 20220117, end: 20221020

REACTIONS (16)
  - Liver disorder [Recovered/Resolved]
  - Melaena [Recovered/Resolved]
  - Transfusion [Unknown]
  - Limb injury [Unknown]
  - Ligament sprain [Unknown]
  - Haemorrhage [Unknown]
  - White blood cell count decreased [Recovered/Resolved]
  - Platelet count decreased [Not Recovered/Not Resolved]
  - White blood cell disorder [Recovering/Resolving]
  - Hypertension [Recovered/Resolved]
  - White blood cell count increased [Unknown]
  - Back pain [Not Recovered/Not Resolved]
  - Dizziness [Recovered/Resolved]
  - Anaemia [Not Recovered/Not Resolved]
  - Product use issue [Unknown]
  - Therapy cessation [Unknown]

NARRATIVE: CASE EVENT DATE: 20221004
